FAERS Safety Report 7790086-9 (Version None)
Quarter: 2011Q3

REPORT INFORMATION
  Report Type: 
  Country: None (occurrence: None)
  Receive Date: 20110930
  Receipt Date: 20100907
  Transmission Date: 20111222
  Serious: No
  Sender: FDA-Public Use
  Company Number: US-ASTRAZENECA-2010SE32026

PATIENT
  Sex: Female

DRUGS (2)
  1. TOPROL-XL [Suspect]
     Indication: BLOOD PRESSURE
     Route: 048
  2. ARIMIDEX [Suspect]
     Route: 048

REACTIONS (3)
  - BEDRIDDEN [None]
  - PAIN [None]
  - BONE PAIN [None]
